FAERS Safety Report 8932551 (Version 1)
Quarter: 2012Q4

REPORT INFORMATION
  Report Type: Spontaneous
  Country: US (occurrence: None)
  Receive Date: 20121120
  Receipt Date: 20121120
  Transmission Date: 20130627
  Serious: Yes (Hospitalization, Other)
  Sender: FDA-Public Use
  Company Number: THQ2012A10141

PATIENT
  Age: 61 Year
  Sex: Female

DRUGS (3)
  1. LANSOPRAZOLE (LANSOPRAZOLE) [Suspect]
     Indication: DRUG USE FOR UNKNOWN INDICATION
     Dosage: 30 mg (30 mg, 1-1 D)
     Dates: start: 20120522
  2. EPIPEN [Suspect]
     Dates: start: 20120704
  3. ETORICOXIB [Suspect]

REACTIONS (2)
  - Device failure [None]
  - Wrong technique in drug usage process [None]
